FAERS Safety Report 6809497-0 (Version None)
Quarter: 2010Q2

REPORT INFORMATION
  Report Type: 
  Country: None (occurrence: None)
  Receive Date: 20100625
  Receipt Date: 20100517
  Transmission Date: 20101027
  Serious: Yes (Other)
  Sender: FDA-Public Use
  Company Number: 1000011968

PATIENT
  Age: 76 Year
  Sex: Male

DRUGS (7)
  1. GLIMEPIRIDE [Suspect]
     Indication: TYPE 2 DIABETES MELLITUS
     Dosage: 6 MG (6 MG, 1 IN 1 D), ORAL
     Route: 048
     Dates: start: 20091029, end: 20100103
  2. METFORMIN HCL [Suspect]
     Indication: TYPE 2 DIABETES MELLITUS
     Dosage: 1000 MG (500 MG, 2 IN 1 D), ORAL
     Route: 048
     Dates: start: 20091029, end: 20100103
  3. DILTIAZEM [Concomitant]
  4. FUROSEMIDE [Concomitant]
  5. POTASSIUM GLUCONATE TAB [Concomitant]
  6. FISH OIL [Concomitant]
  7. WARFARIN SODIUM [Concomitant]

REACTIONS (8)
  - ADRENAL ADENOMA [None]
  - CYST [None]
  - GASTRIC CYST [None]
  - OESOPHAGEAL DISORDER [None]
  - PANCREATIC PSEUDOCYST [None]
  - PANCREATITIS [None]
  - PROSTATE CANCER [None]
  - RENAL CYST [None]
